FAERS Safety Report 7671173-2 (Version None)
Quarter: 2011Q3

REPORT INFORMATION
  Report Type: 
  Country: None (occurrence: None)
  Receive Date: 20110809
  Receipt Date: 20110805
  Transmission Date: 20111222
  Serious: Yes (Death)
  Sender: FDA-Public Use
  Company Number: US-CELGENEUS-163-21880-11080793

PATIENT
  Sex: Male

DRUGS (2)
  1. REVLIMID [Suspect]
     Dosage: 10 MILLIGRAM
     Route: 048
     Dates: start: 20091001
  2. REVLIMID [Suspect]
     Indication: ADRENAL CARCINOMA
     Dosage: 5 MILLIGRAM
     Route: 048
     Dates: start: 20090901, end: 20090101

REACTIONS (2)
  - LEUKAEMIA [None]
  - ADRENAL CARCINOMA [None]
